FAERS Safety Report 13451398 (Version 1)
Quarter: 2017Q2

REPORT INFORMATION
  Report Type: Spontaneous
  Country: US (occurrence: US)
  Receive Date: 20170417
  Receipt Date: 20170417
  Transmission Date: 20170830
  Serious: Yes (Hospitalization, Disabling, Other)
  Sender: FDA-Public Use
  Company Number: None

PATIENT
  Age: 34 Year
  Sex: Male
  Weight: 82.8 kg

DRUGS (5)
  1. RISPERDAL [Concomitant]
     Active Substance: RISPERIDONE
  2. MIRALAX [Suspect]
     Active Substance: POLYETHYLENE GLYCOL 3350
     Indication: CONSTIPATION
     Dosage: 1 TEASPOON AT BEDTIME ORAL
     Route: 048
     Dates: start: 20160608
  3. LITHIUM. [Concomitant]
     Active Substance: LITHIUM
  4. MELATONIN [Concomitant]
     Active Substance: MELATONIN
  5. DEPAKOTE [Concomitant]
     Active Substance: DIVALPROEX SODIUM

REACTIONS (7)
  - Neurosis [None]
  - Paranoia [None]
  - Restlessness [None]
  - Insomnia [None]
  - Haematochezia [None]
  - Anxiety [None]
  - Gastrointestinal inflammation [None]

NARRATIVE: CASE EVENT DATE: 20160608
